FAERS Safety Report 23648429 (Version 11)
Quarter: 2025Q1

REPORT INFORMATION
  Report Type: Report from Study
  Country: CA (occurrence: CA)
  Receive Date: 20240319
  Receipt Date: 20250320
  Transmission Date: 20250408
  Serious: Yes (Other)
  Sender: BIOCON
  Company Number: CA-BIOCON BIOLOGICS LIMITED-BBL2023001907

PATIENT

DRUGS (5)
  1. HULIO [Suspect]
     Active Substance: ADALIMUMAB-FKJP
     Indication: Colitis ulcerative
     Dosage: 40 MG, Q2W
     Route: 065
     Dates: start: 20240104
  2. HULIO [Suspect]
     Active Substance: ADALIMUMAB-FKJP
     Dosage: 40 MG, Q2W
     Route: 058
     Dates: start: 20240104
  3. HULIO [Suspect]
     Active Substance: ADALIMUMAB-FKJP
     Dosage: UNK UNK, QWEEK
     Route: 058
  4. HULIO [Suspect]
     Active Substance: ADALIMUMAB-FKJP
     Dosage: 40 MG, Q2W
     Route: 058
     Dates: start: 20240204
  5. HULIO [Suspect]
     Active Substance: ADALIMUMAB-FKJP
     Dosage: UNK UNK, QWEEK
     Route: 065
     Dates: start: 202407

REACTIONS (19)
  - Mental impairment [Unknown]
  - Lower respiratory tract infection [Unknown]
  - Adverse drug reaction [Unknown]
  - Ear pain [Recovered/Resolved]
  - Crying [Unknown]
  - Teeth brittle [Unknown]
  - Skin swelling [Unknown]
  - Obstructive airways disorder [Unknown]
  - Illness [Unknown]
  - Malaise [Not Recovered/Not Resolved]
  - Rhinorrhoea [Unknown]
  - Weight increased [Unknown]
  - Cough [Not Recovered/Not Resolved]
  - Eye infection [Unknown]
  - Headache [Unknown]
  - COVID-19 [Unknown]
  - Product prescribing error [Unknown]
  - Circumstance or information capable of leading to medication error [Unknown]
  - Inappropriate schedule of product administration [Unknown]

NARRATIVE: CASE EVENT DATE: 20240101
